FAERS Safety Report 9681012 (Version 1)
Quarter: 2013Q4

REPORT INFORMATION
  Report Type: Not Available
  Country: GB (occurrence: GB)
  Receive Date: 20131111
  Receipt Date: 20131111
  Transmission Date: 20140711
  Serious: Yes (Other)
  Sender: FDA-Public Use
  Company Number: GB-ASTELLAS-2013EU009692

PATIENT
  Age: 68 Year
  Sex: Female
  Weight: 100 kg

DRUGS (8)
  1. BETMIGA [Suspect]
     Indication: URGE INCONTINENCE
     Dosage: 50 MG, UNKNOWN/D
     Route: 048
     Dates: start: 20131008
  2. ASPIRIN [Concomitant]
     Dosage: UNK
     Route: 065
  3. BENDROFLUMETHIAZIDE [Concomitant]
     Dosage: UNK
     Route: 065
  4. CITALOPRAM [Concomitant]
     Dosage: UNK
     Route: 065
  5. FELODIPINE [Concomitant]
     Dosage: UNK
     Route: 065
  6. ISOSORBIDE [Concomitant]
     Dosage: UNK
     Route: 065
  7. PREMARIN [Concomitant]
     Dosage: UNK
     Route: 065
  8. SIMVASTATIN [Concomitant]
     Dosage: UNK
     Route: 065

REACTIONS (2)
  - Atrial fibrillation [Not Recovered/Not Resolved]
  - Chest pain [Unknown]
